FAERS Safety Report 9106351 (Version 2)
Quarter: 2013Q2

REPORT INFORMATION
  Report Type: Spontaneous
  Country: US (occurrence: US)
  Receive Date: 20130220
  Receipt Date: 20130510
  Transmission Date: 20140414
  Serious: Yes (Other)
  Sender: FDA-Public Use
  Company Number: US-RB-050067-13

PATIENT
  Age: 36 Year
  Sex: Female
  Weight: 42 kg

DRUGS (1)
  1. MUCINEX DM [Suspect]
     Indication: NASAL CONGESTION
     Dosage: TOOK 1 TABLET ON 04-DEC-2012 OR 05-DEC-2012 AROUND 9AM
     Route: 048

REACTIONS (20)
  - Anxiety [Recovered/Resolved]
  - Dehydration [Recovered/Resolved]
  - Migraine [Recovered/Resolved]
  - Hypersensitivity [Recovered/Resolved]
  - Haemoptysis [Recovered/Resolved]
  - Syncope [Recovered/Resolved]
  - Depressed level of consciousness [Recovered/Resolved]
  - Muscle tightness [Recovered/Resolved]
  - Speech disorder [Recovered/Resolved]
  - VIIth nerve paralysis [Recovered/Resolved]
  - Muscle twitching [Recovered/Resolved]
  - Feeling jittery [Recovered/Resolved]
  - Nervousness [Recovered/Resolved]
  - Paraesthesia [Recovered/Resolved]
  - Asthenia [Recovered/Resolved]
  - Diarrhoea [Recovered/Resolved]
  - Vomiting [Recovered/Resolved]
  - Nausea [Recovered/Resolved]
  - Dizziness [Recovered/Resolved]
  - Dizziness [Recovered/Resolved]
